FAERS Safety Report 7545140-3 (Version None)
Quarter: 2011Q2

REPORT INFORMATION
  Report Type: 
  Country: None (occurrence: None)
  Receive Date: 20110610
  Receipt Date: 20110610
  Transmission Date: 20111010
  Serious: Yes (Disabling, Other)
  Sender: FDA-Public Use
  Company Number: None

PATIENT
  Age: 42 Year
  Sex: Female
  Weight: 77.1115 kg

DRUGS (1)
  1. EFFEXOR XR [Suspect]

REACTIONS (16)
  - SOMNOLENCE [None]
  - BALANCE DISORDER [None]
  - PAIN [None]
  - ENERGY INCREASED [None]
  - CRYING [None]
  - NAUSEA [None]
  - GASTRIC PH DECREASED [None]
  - PAIN IN EXTREMITY [None]
  - JOINT STIFFNESS [None]
  - DRUG DEPENDENCE [None]
  - ILL-DEFINED DISORDER [None]
  - OEDEMA PERIPHERAL [None]
  - MYALGIA [None]
  - TREMOR [None]
  - VOMITING [None]
  - ARTHRALGIA [None]
